FAERS Safety Report 21590662 (Version 1)
Quarter: 2022Q4

REPORT INFORMATION
  Report Type: Spontaneous
  Country: US (occurrence: None)
  Receive Date: 20221111
  Receipt Date: 20221111
  Transmission Date: 20230113
  Serious: No
  Sender: FDA-Public Use
  Company Number: None

PATIENT
  Age: 88 Year
  Sex: Female
  Weight: 46.63 kg

DRUGS (33)
  1. LENALIDOMIDE [Suspect]
     Active Substance: LENALIDOMIDE
     Indication: Plasma cell myeloma
     Dosage: OTHER FREQUENCY : 21D ON 7D OFF;?
     Route: 048
     Dates: start: 201912, end: 20221111
  2. ASPIRIN [Concomitant]
     Active Substance: ASPIRIN
  3. BRIMONIDINE [Concomitant]
     Active Substance: BRIMONIDINE TARTRATE
  4. BUMETANIDE [Concomitant]
     Active Substance: BUMETANIDE
  5. CALCIUM [Concomitant]
     Active Substance: CALCIUM
  6. CELEXA [Concomitant]
     Active Substance: CITALOPRAM HYDROBROMIDE
  7. VITAMINS [Concomitant]
     Active Substance: VITAMINS
  8. CHLORHEXIDINE [Concomitant]
     Active Substance: CHLORHEXIDINE
  9. CULTURELLE PROBIOTICS [Concomitant]
  10. DEXAMETHASONE [Concomitant]
     Active Substance: DEXAMETHASONE
  11. DOXYCYCLINE [Concomitant]
     Active Substance: DOXYCYCLINE
  12. GABAPENTIN [Concomitant]
     Active Substance: GABAPENTIN
  13. IMODIUM AD [Concomitant]
     Active Substance: LOPERAMIDE HYDROCHLORIDE
  14. IRON [Concomitant]
     Active Substance: IRON
  15. LATANOPROST [Concomitant]
     Active Substance: LATANOPROST
  16. LEVOFLOXACIN [Concomitant]
     Active Substance: LEVOFLOXACIN
  17. LOMOTIL [Concomitant]
     Active Substance: ATROPINE SULFATE\DIPHENOXYLATE HYDROCHLORIDE
  18. OSCAL [Concomitant]
     Active Substance: CALCIUM CARBONATE
  19. PENTOXIFYLLINE [Concomitant]
     Active Substance: PENTOXIFYLLINE
  20. PEPCID [Concomitant]
     Active Substance: FAMOTIDINE
  21. PILOCARPINE [Concomitant]
     Active Substance: PILOCARPINE
  22. PROBIOTICS NOS [Concomitant]
     Active Substance: PROBIOTICS NOS
  23. REFRESH PLUS [Concomitant]
     Active Substance: CARBOXYMETHYLCELLULOSE SODIUM
  24. RHOPRESSA [Concomitant]
     Active Substance: NETARSUDIL MESYLATE
  25. TRAMADOL [Concomitant]
     Active Substance: TRAMADOL
  26. TRENTAL [Concomitant]
     Active Substance: PENTOXIFYLLINE
  27. TUMS [Concomitant]
     Active Substance: CALCIUM CARBONATE
  28. HERBALS\TURMERIC [Concomitant]
     Active Substance: HERBALS\TURMERIC
  29. TYLENOL [Concomitant]
     Active Substance: ACETAMINOPHEN
  30. VENTOLIN [Concomitant]
     Active Substance: ALBUTEROL SULFATE
  31. VITAMIN D [Concomitant]
     Active Substance: VITAMIN D NOS
  32. VITAMIN E [Concomitant]
     Active Substance: .ALPHA.-TOCOPHEROL
  33. XANAX [Concomitant]
     Active Substance: ALPRAZOLAM

REACTIONS (3)
  - Haemoglobin decreased [None]
  - Myocardial necrosis marker increased [None]
  - Pulmonary oedema [None]
